FAERS Safety Report 10143862 (Version 2)
Quarter: 2014Q2

REPORT INFORMATION
  Report Type: Spontaneous
  Country: US (occurrence: US)
  Receive Date: 20140430
  Receipt Date: 20140520
  Transmission Date: 20141212
  Serious: Yes (Other)
  Sender: FDA-Public Use
  Company Number: US-ASTRAZENECA-2014SE28283

PATIENT
  Age: 54 Year
  Sex: Female
  Weight: 76.2 kg

DRUGS (5)
  1. CRESTOR [Suspect]
     Indication: HYPERLIPIDAEMIA
     Route: 048
     Dates: start: 201312, end: 201404
  2. CRESTOR [Suspect]
     Indication: HYPERLIPIDAEMIA
     Route: 048
     Dates: start: 2014
  3. LISINOPRIL [Suspect]
     Route: 048
  4. UNKNOWN MEDICATION [Suspect]
     Route: 065
  5. OTHER SEVERAL MEDICATIONS [Concomitant]

REACTIONS (3)
  - Blister [Recovered/Resolved with Sequelae]
  - Skin exfoliation [Recovered/Resolved with Sequelae]
  - Pruritus [Not Recovered/Not Resolved]
